FAERS Safety Report 5118715-9 (Version None)
Quarter: 2006Q4

REPORT INFORMATION
  Report Type: 
  Country: None (occurrence: None)
  Receive Date: 20061002
  Receipt Date: 20060926
  Transmission Date: 20070319
  Serious: Yes (Other)
  Sender: FDA-Public Use
  Company Number: PHEH2006US12211

PATIENT
  Age: 66 Year
  Sex: Female

DRUGS (1)
  1. EXJADE [Suspect]
     Dosage: 1250 MG, QD
     Route: 048
     Dates: start: 20060909, end: 20060916

REACTIONS (4)
  - EYELID DISORDER [None]
  - PALATAL OEDEMA [None]
  - RASH [None]
  - SWOLLEN TONGUE [None]
